FAERS Safety Report 9023047 (Version 1)
Quarter: 2013Q1

REPORT INFORMATION
  Report Type: Spontaneous
  Country: US (occurrence: US)
  Receive Date: 20130120
  Receipt Date: 20130120
  Transmission Date: 20140127
  Serious: No
  Sender: FDA-Public Use
  Company Number: US-ALLERGAN-1215562US

PATIENT
  Age: 44 Year
  Sex: Female

DRUGS (6)
  1. BOTOX COSMETIC [Suspect]
     Indication: SKIN WRINKLING
     Dosage: 48 UNITS, SINGLE
     Route: 030
     Dates: start: 20121105, end: 20121105
  2. BOTOX COSMETIC [Suspect]
     Indication: SKIN WRINKLING
  3. BOTOX COSMETIC [Suspect]
     Indication: SKIN WRINKLING
  4. LIPITOR [Concomitant]
     Indication: BLOOD CHOLESTEROL INCREASED
     Dosage: UNK
     Route: 048
  5. PROZAC                             /00724401/ [Concomitant]
     Indication: DEPRESSION
     Dosage: UNK
     Route: 048
     Dates: start: 20121025
  6. PROZAC                             /00724401/ [Concomitant]
     Indication: ANXIETY

REACTIONS (6)
  - Feeling hot [Not Recovered/Not Resolved]
  - Chest discomfort [Unknown]
  - Nausea [Unknown]
  - Chills [Unknown]
  - Dizziness [Unknown]
  - Hot flush [Unknown]
